FAERS Safety Report 10835841 (Version 1)
Quarter: 2015Q1

REPORT INFORMATION
  Report Type: Spontaneous
  Country: US (occurrence: US)
  Receive Date: 20150219
  Receipt Date: 20150219
  Transmission Date: 20150721
  Serious: Yes (Hospitalization)
  Sender: FDA-Public Use
  Company Number: US-ABBVIE-14P-163-1201951-00

PATIENT
  Age: 55 Year
  Sex: Male

DRUGS (2)
  1. LIPITOR [Concomitant]
     Active Substance: ATORVASTATIN CALCIUM
     Indication: PRODUCT USED FOR UNKNOWN INDICATION
  2. HUMIRA [Suspect]
     Active Substance: ADALIMUMAB
     Indication: PSORIASIS
     Dates: start: 20111118, end: 201212

REACTIONS (6)
  - Pyrexia [Recovering/Resolving]
  - Sepsis [Recovering/Resolving]
  - Liver abscess [Recovering/Resolving]
  - Malaise [Recovering/Resolving]
  - Lymphocytosis [Recovering/Resolving]
  - Normochromic normocytic anaemia [Recovering/Resolving]

NARRATIVE: CASE EVENT DATE: 201302
